FAERS Safety Report 4725183-5 (Version None)
Quarter: 2005Q3

REPORT INFORMATION
  Report Type: 
  Country: None (occurrence: None)
  Receive Date: 20050721
  Receipt Date: 20050610
  Transmission Date: 20060218
  Serious: No
  Sender: FDA-Public Use
  Company Number: 2005SP001336

PATIENT
  Age: 67 Year
  Sex: Female
  Weight: 81.6475 kg

DRUGS (3)
  1. LUNESTA [Suspect]
     Indication: INSOMNIA
     Dosage: 1 MG; HS; ORAL, 2 MG; HS; ORAL
     Route: 048
     Dates: start: 20050101, end: 20050601
  2. LUNESTA [Suspect]
     Indication: INSOMNIA
     Dosage: 1 MG; HS; ORAL, 2 MG; HS; ORAL
     Route: 048
     Dates: start: 20050608
  3. ENALAPRIL [Concomitant]

REACTIONS (2)
  - DRUG INEFFECTIVE [None]
  - INSOMNIA [None]
